FAERS Safety Report 7993912-3 (Version None)
Quarter: 2011Q4

REPORT INFORMATION
  Report Type: 
  Country: None (occurrence: None)
  Receive Date: 20111215
  Receipt Date: 20111129
  Transmission Date: 20120403
  Serious: Yes (Other)
  Sender: FDA-Public Use
  Company Number: COL_10403_2011

PATIENT
  Sex: Female

DRUGS (3)
  1. CHLORHEXIDINE GLUCONATE [Suspect]
     Indication: ORAL DISCOMFORT
     Dosage: (1 DF BID, [RECOMMENDED AMOUNT OR LESS] ORAL)
     Route: 048
     Dates: start: 20110101, end: 20110101
  2. CHLORHEXIDINE GLUCONATE [Suspect]
     Indication: GINGIVITIS
     Dosage: (1 DF BID, [RECOMMENDED AMOUNT OR LESS] ORAL)
     Route: 048
     Dates: start: 20110101, end: 20110101
  3. CHLORHEXIDINE GLUCONATE [Suspect]
     Indication: DENTAL PLAQUE
     Dosage: (1 DF BID, [RECOMMENDED AMOUNT OR LESS] ORAL)
     Route: 048
     Dates: start: 20110101, end: 20110101

REACTIONS (6)
  - EMOTIONAL DISTRESS [None]
  - MIDDLE INSOMNIA [None]
  - CRYING [None]
  - BURNING MOUTH SYNDROME [None]
  - SUICIDAL IDEATION [None]
  - ORAL DISORDER [None]
